FAERS Safety Report 20190278 (Version 1)
Quarter: 2021Q4

REPORT INFORMATION
  Report Type: Spontaneous
  Country: None (occurrence: US)
  Receive Date: 20211215
  Receipt Date: 20211215
  Transmission Date: 20220303
  Serious: Yes (Hospitalization)
  Sender: FDA-Public Use
  Company Number: US-Acella Pharmaceuticals, LLC-2123076

PATIENT
  Age: 44 Year
  Sex: Female

DRUGS (3)
  1. GABAPENTIN [Suspect]
     Active Substance: GABAPENTIN
     Indication: Product used for unknown indication
     Route: 065
  2. LAMOTRIGINE [Concomitant]
     Active Substance: LAMOTRIGINE
  3. QUETIAPINE [Concomitant]
     Active Substance: QUETIAPINE

REACTIONS (15)
  - Eosinophilic pneumonia [Recovered/Resolved]
  - Pyrexia [Recovered/Resolved]
  - Chills [Recovered/Resolved]
  - Dyspnoea [Recovered/Resolved]
  - Cough [Recovered/Resolved]
  - Breath sounds abnormal [Recovered/Resolved]
  - Eosinophilia [Recovered/Resolved]
  - C-reactive protein increased [Recovered/Resolved]
  - Interleukin-2 receptor increased [Recovered/Resolved]
  - Procalcitonin increased [Recovered/Resolved]
  - Blood immunoglobulin E increased [Recovered/Resolved]
  - Pleural effusion [Recovered/Resolved]
  - Pulmonary congestion [Recovered/Resolved]
  - Lymphoid tissue hyperplasia [Recovered/Resolved]
  - Drug reaction with eosinophilia and systemic symptoms [Recovered/Resolved]
